FAERS Safety Report 13965839 (Version 1)
Quarter: 2017Q3

REPORT INFORMATION
  Report Type: Spontaneous
  Country: DE (occurrence: DE)
  Receive Date: 20170913
  Receipt Date: 20170913
  Transmission Date: 20171128
  Serious: Yes (Hospitalization, Other)
  Sender: FDA-Public Use
  Company Number: DE-PFIZER INC-2017387963

PATIENT
  Age: 76 Year
  Sex: Female

DRUGS (10)
  1. TREVILOR RETARD [Suspect]
     Active Substance: VENLAFAXINE HYDROCHLORIDE
     Dosage: 37.5 MG, 1X/DAY
     Dates: start: 20140124, end: 2014
  2. RISPERIDONE. [Interacting]
     Active Substance: RISPERIDONE
     Dosage: 1.25 MG, 1X/DAY
     Dates: start: 20140707, end: 201407
  3. TRAZODON NEURAXPHARM [Concomitant]
     Dosage: 175 MG, 1X/DAY
     Dates: start: 20140807, end: 201408
  4. TAVOR (LORAZEPAM) [Concomitant]
     Active Substance: LORAZEPAM
     Dosage: UNK
  5. RISPERIDONE. [Interacting]
     Active Substance: RISPERIDONE
     Dosage: 1.5 MG, UNK
     Dates: start: 20140725
  6. TRAZODON NEURAXPHARM [Concomitant]
     Dosage: 150 MG, 1X/DAY
     Dates: start: 20140806, end: 201408
  7. TREVILOR RETARD [Interacting]
     Active Substance: VENLAFAXINE HYDROCHLORIDE
     Dosage: 75 MG, 1X/DAY
     Dates: start: 20140806
  8. TRAZODON NEURAXPHARM [Concomitant]
     Dosage: 125 MG, 1X/DAY
     Dates: start: 20140707, end: 2014
  9. TRAZODON NEURAXPHARM [Concomitant]
     Dosage: 225 MG, 1X/DAY
     Dates: start: 20140811
  10. RISPERIDONE. [Interacting]
     Active Substance: RISPERIDONE
     Dosage: 1 MG, 1X/DAY
     Dates: start: 20130826

REACTIONS (2)
  - Drug interaction [Unknown]
  - Pleurothotonus [Recovered/Resolved]

NARRATIVE: CASE EVENT DATE: 20140811
